FAERS Safety Report 5914559-6 (Version None)
Quarter: 2008Q4

REPORT INFORMATION
  Report Type: 
  Country: None (occurrence: None)
  Receive Date: 20081008
  Receipt Date: 20080925
  Transmission Date: 20090506
  Serious: Yes (Hospitalization, Other)
  Sender: FDA-Public Use
  Company Number: FEI2008-1310

PATIENT
  Age: 23 Year
  Sex: Female
  Weight: 59.8748 kg

DRUGS (2)
  1. PARAGARD T 380A [Suspect]
     Indication: CONTRACEPTION
     Dosage: INTRA-UTERINE
     Route: 015
     Dates: start: 20070707
  2. PRENATAL VITAMINS (PRENATAL VITAMINS) [Concomitant]

REACTIONS (7)
  - ABDOMINAL PAIN [None]
  - BED REST [None]
  - DEVICE INEFFECTIVE [None]
  - PREGNANCY WITH CONTRACEPTIVE DEVICE [None]
  - PREMATURE LABOUR [None]
  - PREMATURE RUPTURE OF MEMBRANES [None]
  - VAGINAL HAEMORRHAGE [None]
